FAERS Safety Report 10298410 (Version 1)
Quarter: 2014Q3

REPORT INFORMATION
  Report Type: Report from Study
  Country: US (occurrence: US)
  Receive Date: 20140711
  Receipt Date: 20140711
  Transmission Date: 20150326
  Serious: Yes (Other)
  Sender: FDA-Public Use
  Company Number: US-SA-2014SA089415

PATIENT
  Age: 59 Year
  Sex: Female

DRUGS (2)
  1. HUMALOG [Suspect]
     Active Substance: INSULIN LISPRO
     Indication: PRODUCT USED FOR UNKNOWN INDICATION
     Route: 065
  2. LANTUS [Suspect]
     Active Substance: INSULIN GLARGINE
     Indication: PRODUCT USED FOR UNKNOWN INDICATION
     Route: 058

REACTIONS (9)
  - Feeling of despair [Unknown]
  - Blood cholesterol increased [Unknown]
  - Depression [Unknown]
  - Lymphoma [Unknown]
  - Apathy [Unknown]
  - Thyroid disorder [Unknown]
  - Hypertension [Unknown]
  - Weight increased [Unknown]
  - Blood glucose decreased [Unknown]
